FAERS Safety Report 11628357 (Version 2)
Quarter: 2015Q4

REPORT INFORMATION
  Report Type: Spontaneous
  Country: US (occurrence: US)
  Receive Date: 20151014
  Receipt Date: 20151202
  Transmission Date: 20160304
  Serious: Yes (Other)
  Sender: FDA-Public Use
  Company Number: US-ROCHE-1642468

PATIENT
  Age: 14 Year
  Sex: Male

DRUGS (1)
  1. TAMIFLU [Suspect]
     Active Substance: OSELTAMIVIR PHOSPHATE
     Indication: PRODUCT USED FOR UNKNOWN INDICATION
     Dosage: TAKE 12.5 ML (75MG) BY MOUTH BID FOR 5 DAYS
     Route: 048

REACTIONS (19)
  - Cough [Unknown]
  - Abdominal pain upper [Unknown]
  - Vomiting [Unknown]
  - Injury [Unknown]
  - Headache [Unknown]
  - Fatigue [Unknown]
  - Decreased appetite [Unknown]
  - Moaning [Unknown]
  - Overdose [Unknown]
  - Product quality issue [Unknown]
  - Confusional state [Unknown]
  - Pyrexia [Recovering/Resolving]
  - Nightmare [Unknown]
  - Erythema [Unknown]
  - Pain [Unknown]
  - Enuresis [Unknown]
  - Diarrhoea [Unknown]
  - Nausea [Unknown]
  - Rhinorrhoea [Unknown]

NARRATIVE: CASE EVENT DATE: 20141219
